FAERS Safety Report 7544034-7 (Version None)
Quarter: 2011Q2

REPORT INFORMATION
  Report Type: 
  Country: None (occurrence: None)
  Receive Date: 20110613
  Receipt Date: 20050822
  Transmission Date: 20111010
  Serious: Yes (Hospitalization)
  Sender: FDA-Public Use
  Company Number: PHHO2005JP01934

PATIENT
  Sex: Male
  Weight: 59 kg

DRUGS (6)
  1. FRANDOL [Concomitant]
  2. PERSANTIN [Concomitant]
  3. VERAPAMIL HCL [Concomitant]
  4. DIOVAN [Suspect]
     Indication: HYPERTENSION
     Dosage: 80 MG / DAY
     Route: 048
     Dates: start: 20030506
  5. TICLOPIDINE HCL [Concomitant]
  6. NORVASC [Concomitant]

REACTIONS (2)
  - ANGINA PECTORIS [None]
  - CORONARY ARTERY STENOSIS [None]
